FAERS Safety Report 8131593-9 (Version None)
Quarter: 2012Q1

REPORT INFORMATION
  Report Type: 
  Country: None (occurrence: None)
  Receive Date: 20120208
  Receipt Date: 20120131
  Transmission Date: 20120608
  Serious: Yes (Other)
  Sender: FDA-Public Use
  Company Number: DSA_48817_2012

PATIENT
  Sex: Female
  Weight: 44.4525 kg

DRUGS (14)
  1. ATIVAN [Concomitant]
  2. MAGNESIUM HYDROXIDE TAB [Concomitant]
  3. HYDROCHLOROTHIAZIDE [Concomitant]
  4. METFORMIN HCL [Concomitant]
  5. TEMAZEPAM [Concomitant]
  6. UTI-STAT [Concomitant]
  7. XENAZINE [Suspect]
     Indication: HUNTINGTON'S DISEASE
     Dosage: (12.5 MG TID ORAL), (12.5 MG BID ORAL)
     Route: 048
     Dates: end: 20110914
  8. XENAZINE [Suspect]
     Indication: HUNTINGTON'S DISEASE
     Dosage: (12.5 MG TID ORAL), (12.5 MG BID ORAL)
     Route: 048
     Dates: start: 20110915
  9. GUAIFENESIN AND DEXTROMETHORPHAN HBR [Concomitant]
  10. ACETAMINOPHEN [Concomitant]
  11. METHIMAZOLE [Concomitant]
  12. RISPERDAL [Concomitant]
  13. CALCIUM CARBONATE W/VITAMIN D NOS [Concomitant]
  14. ERGOCALCIFEROL [Concomitant]

REACTIONS (6)
  - ASTHENIA [None]
  - DEPRESSION [None]
  - IRRITABILITY [None]
  - CONDITION AGGRAVATED [None]
  - HUNTINGTON'S DISEASE [None]
  - AGITATION [None]
